FAERS Safety Report 5979267-4 (Version None)
Quarter: 2008Q4

REPORT INFORMATION
  Report Type: 
  Country: None (occurrence: None)
  Receive Date: 20081204
  Receipt Date: 20080905
  Transmission Date: 20090506
  Serious: No
  Sender: FDA-Public Use
  Company Number: US-ABBOTT-08P-163-0474778-00

PATIENT
  Sex: Female
  Weight: 80.812 kg

DRUGS (7)
  1. TRICOR [Suspect]
     Indication: BLOOD TRIGLYCERIDES INCREASED
     Route: 048
     Dates: start: 20080902, end: 20080903
  2. MECLIZINE [Concomitant]
     Indication: INNER EAR DISORDER
     Dosage: FOR YEARS
     Route: 048
  3. ALLEGRA D 24 HOUR [Concomitant]
     Indication: HYPERSENSITIVITY
     Dosage: FOR YEARS
     Route: 048
  4. CONJUGATED ESTROGENS [Concomitant]
     Indication: HORMONE REPLACEMENT THERAPY
     Dosage: FOR YEARS
     Route: 048
  5. ESOMEPRAZOLE MAGNESIUM [Concomitant]
     Indication: HIATUS HERNIA
     Route: 048
     Dates: start: 20050101
  6. LEVOTHYROXINE SODIUM [Concomitant]
     Indication: HYPOTHYROIDISM
     Dosage: FOR YEARS
     Route: 048
  7. IBUPROFEN TABLETS [Concomitant]
     Indication: PAIN
     Dosage: ONCE A DAY AS NEEDED
     Route: 048

REACTIONS (3)
  - ASTHENIA [None]
  - DIZZINESS [None]
  - FEELING JITTERY [None]
